FAERS Safety Report 10018988 (Version 3)
Quarter: 2014Q2

REPORT INFORMATION
  Report Type: Spontaneous
  Country: JP (occurrence: JP)
  Receive Date: 20140318
  Receipt Date: 20140408
  Transmission Date: 20141212
  Serious: No
  Sender: FDA-Public Use
  Company Number: JP-GLAXOSMITHKLINE-B0976871A

PATIENT
  Age: 10 Year
  Sex: Male
  Weight: 34 kg

DRUGS (4)
  1. RELENZA [Suspect]
     Indication: INFLUENZA
     Dosage: 10MG TWICE PER DAY
     Route: 055
     Dates: start: 20140310, end: 20140311
  2. COCARL [Concomitant]
     Indication: PYREXIA
     Dosage: 400MG THREE TIMES PER DAY
     Route: 048
     Dates: start: 20140310, end: 20140311
  3. MUCOSOLVAN [Concomitant]
     Indication: COUGH
     Dosage: .7G THREE TIMES PER DAY
     Route: 048
     Dates: start: 20140310, end: 20140317
  4. ASVERIN [Concomitant]
     Indication: COUGH
     Dosage: .2G THREE TIMES PER DAY
     Route: 048
     Dates: start: 20140310, end: 20140317

REACTIONS (3)
  - Visual acuity reduced [Recovering/Resolving]
  - Ocular hyperaemia [Recovering/Resolving]
  - Nausea [Unknown]
